FAERS Safety Report 18511362 (Version 1)
Quarter: 2020Q4

REPORT INFORMATION
  Report Type: Spontaneous
  Country: DE (occurrence: DE)
  Receive Date: 20201117
  Receipt Date: 20201117
  Transmission Date: 20210114
  Serious: Yes (Hospitalization)
  Sender: FDA-Public Use
  Company Number: NVSC2020DE299972

PATIENT
  Age: 7 Month
  Sex: Female
  Weight: 7.4 kg

DRUGS (3)
  1. AMPICILLIN [Suspect]
     Active Substance: AMPICILLIN
     Indication: PYELONEPHRITIS
     Dosage: 750 MG,QD (EVERY DAYS 3 SEPARATED DOSES)
     Route: 042
     Dates: start: 20200917, end: 20200920
  2. CEFPODOXIME PROXETIL. [Suspect]
     Active Substance: CEFPODOXIME PROXETIL
     Indication: PYELONEPHRITIS
     Dosage: 80 MG, QD (EVERY DAYS 2 SEPARATED DOSES)
     Route: 048
     Dates: start: 20200920, end: 20200923
  3. CEFOTAXIME [Suspect]
     Active Substance: CEFOTAXIME SODIUM
     Indication: PYELONEPHRITIS
     Dosage: 600 MG, QD (EVERY DAYS 3 SEPARATED DOSES)
     Route: 042
     Dates: start: 20200917, end: 20200920

REACTIONS (2)
  - Thrombocytosis [Not Recovered/Not Resolved]
  - Neutropenia [Not Recovered/Not Resolved]

NARRATIVE: CASE EVENT DATE: 20200922
